FAERS Safety Report 6448417-8 (Version None)
Quarter: 2009Q4

REPORT INFORMATION
  Report Type: 
  Country: None (occurrence: None)
  Receive Date: 20091120
  Receipt Date: 20091110
  Transmission Date: 20100525
  Serious: Yes (Hospitalization, Other)
  Sender: FDA-Public Use
  Company Number: PHEH2009US08669

PATIENT
  Sex: Female
  Weight: 82.7 kg

DRUGS (2)
  1. GLEEVEC [Suspect]
     Indication: GASTROINTESTINAL STROMAL TUMOUR
     Dosage: 400 MG, QOD
     Route: 048
     Dates: start: 20090401
  2. GLEEVEC [Suspect]
     Dosage: UNK

REACTIONS (21)
  - ALANINE AMINOTRANSFERASE INCREASED [None]
  - ASPARTATE AMINOTRANSFERASE INCREASED [None]
  - BILIRUBIN CONJUGATED INCREASED [None]
  - BLOOD ALKALINE PHOSPHATASE INCREASED [None]
  - BLOOD BILIRUBIN INCREASED [None]
  - BLOOD CHLORIDE INCREASED [None]
  - BLOOD GLUCOSE INCREASED [None]
  - BLOOD IRON INCREASED [None]
  - BLOOD SODIUM INCREASED [None]
  - BLOOD UREA INCREASED [None]
  - FATIGUE [None]
  - GAMMA-GLUTAMYLTRANSFERASE INCREASED [None]
  - GASTROINTESTINAL SURGERY [None]
  - HEPATIC ENZYME ABNORMAL [None]
  - LYMPHOCYTE COUNT DECREASED [None]
  - NAUSEA [None]
  - PARANASAL SINUS DISCOMFORT [None]
  - PLATELET COUNT DECREASED [None]
  - RED CELL DISTRIBUTION WIDTH INCREASED [None]
  - SERUM FERRITIN INCREASED [None]
  - WHITE BLOOD CELL COUNT DECREASED [None]
